FAERS Safety Report 16196533 (Version 2)
Quarter: 2020Q3

REPORT INFORMATION
  Report Type: Spontaneous
  Country: FR (occurrence: FR)
  Receive Date: 20190415
  Receipt Date: 20200701
  Transmission Date: 20201102
  Serious: Yes (Hospitalization, Other)
  Sender: FDA-Public Use
  Company Number: FR-B.I. PHARMACEUTICALS,INC./RIDGEFIELD-2019-12-001192

PATIENT
  Age: 46 Year
  Sex: Male

DRUGS (3)
  1. PHENYLBUTAZONE [Suspect]
     Active Substance: PHENYLBUTAZONE
     Indication: RHEUMATIC DISORDER
     Route: 065
  2. MOBIC [Suspect]
     Active Substance: MELOXICAM
     Indication: RHEUMATIC DISORDER
     Route: 065
  3. NAPROXEN. [Suspect]
     Active Substance: NAPROXEN
     Indication: RHEUMATIC DISORDER
     Route: 065

REACTIONS (11)
  - Drug reaction with eosinophilia and systemic symptoms [Recovered/Resolved]
  - Hepatocellular injury [Unknown]
  - Rash maculo-papular [Unknown]
  - Pyrexia [Unknown]
  - Blood creatinine increased [Unknown]
  - Cough [Unknown]
  - Hypoaesthesia [Unknown]
  - Jaundice [Unknown]
  - Eosinophilia [Unknown]
  - Cholestasis [Unknown]
  - Proteinuria [Unknown]
